FAERS Safety Report 5360672-4 (Version None)
Quarter: 2007Q2

REPORT INFORMATION
  Report Type: 
  Country: None (occurrence: None)
  Receive Date: 20070618
  Receipt Date: 20070607
  Transmission Date: 20071010
  Serious: Yes (Life-Threatening, Hospitalization)
  Sender: FDA-Public Use
  Company Number: JP-MERCK-0702USA04130

PATIENT
  Age: 60 Year
  Sex: Male

DRUGS (5)
  1. ZOCOR [Suspect]
     Indication: HYPERLIPIDAEMIA
     Route: 048
     Dates: start: 20050715, end: 20070217
  2. DILTIAZEM HCL [Concomitant]
     Route: 048
     Dates: end: 20070220
  3. ASPIRIN [Concomitant]
     Indication: THROMBOSIS PROPHYLAXIS
     Route: 048
     Dates: end: 20070220
  4. NATEGLINIDE [Concomitant]
     Indication: DIABETES MELLITUS
     Route: 048
     Dates: end: 20070220
  5. EPADEL [Concomitant]
     Indication: HYPERLIPIDAEMIA
     Route: 048
     Dates: end: 20070220

REACTIONS (1)
  - NEUROPATHY PERIPHERAL [None]
